FAERS Safety Report 7821421-0 (Version None)
Quarter: 2011Q4

REPORT INFORMATION
  Report Type: 
  Country: None (occurrence: None)
  Receive Date: 20111018
  Receipt Date: 20111006
  Transmission Date: 20120403
  Serious: Yes (Hospitalization, Disabling, Other)
  Sender: FDA-Public Use
  Company Number: DE-ELI_LILLY_AND_COMPANY-DE201108005188

PATIENT
  Sex: Male

DRUGS (3)
  1. ZYPREXA [Suspect]
     Indication: PSYCHOTIC DISORDER
     Dosage: 2.5 MG, UNK
     Route: 048
     Dates: start: 20090401, end: 20110301
  2. ZYPREXA [Suspect]
     Dosage: 5 MG, UNK
     Route: 048
  3. AKINETON [Concomitant]
     Dosage: UNK
     Dates: start: 20110301

REACTIONS (7)
  - FLOPPY EYELID SYNDROME [None]
  - CARDIAC DISORDER [None]
  - SOMATISATION DISORDER [None]
  - CHOKING [None]
  - THROAT TIGHTNESS [None]
  - WRONG TECHNIQUE IN DRUG USAGE PROCESS [None]
  - DYSPHAGIA [None]
